FAERS Safety Report 7639353-X (Version None)
Quarter: 2011Q3

REPORT INFORMATION
  Report Type: 
  Country: None (occurrence: None)
  Receive Date: 20110727
  Receipt Date: 20110725
  Transmission Date: 20111222
  Serious: Yes (Other)
  Sender: FDA-Public Use
  Company Number: GXKR2011DE02409

PATIENT
  Age: 18 Year
  Sex: Male

DRUGS (1)
  1. CLARITHROMYCIN [Suspect]
     Dosage: 250 MG, UNK
     Route: 048

REACTIONS (1)
  - EPILEPSY [None]
